FAERS Safety Report 8888714 (Version 3)
Quarter: 2016Q3

REPORT INFORMATION
  Report Type: Spontaneous
  Country: JP (occurrence: JP)
  Receive Date: 20121106
  Receipt Date: 20160818
  Transmission Date: 20161109
  Serious: Yes (Life-Threatening, Other)
  Sender: FDA-Public Use
  Company Number: JP-GLAXOSMITHKLINE-B0841058A

PATIENT
  Age: 63 Year
  Sex: Female

DRUGS (8)
  1. VALPROATE SODIUM. [Suspect]
     Active Substance: VALPROATE SODIUM
     Indication: MOOD ALTERED
     Dosage: 600 MG, BID
     Dates: end: 20121014
  2. CYMBALTA [Concomitant]
     Active Substance: DULOXETINE HYDROCHLORIDE
     Route: 048
  3. REMERON [Concomitant]
     Active Substance: MIRTAZAPINE
     Route: 048
  4. LIMAS [Concomitant]
     Active Substance: LITHIUM CARBONATE
     Route: 048
  5. HALRACK [Concomitant]
     Active Substance: TRIAZOLAM
     Route: 048
  6. LAMOTRIGINE. [Suspect]
     Active Substance: LAMOTRIGINE
     Indication: BIPOLAR DISORDER
     Dosage: 50 MG, 1D
     Route: 048
     Dates: start: 20120918, end: 20121004
  7. LAMOTRIGINE. [Suspect]
     Active Substance: LAMOTRIGINE
     Dosage: 75 MG, QD
     Route: 048
     Dates: start: 20121005, end: 20121014
  8. EURODIN TABLET (JAPAN) [Concomitant]
     Route: 048

REACTIONS (11)
  - Rash [Unknown]
  - Ocular hyperaemia [Unknown]
  - Erythema of eyelid [Unknown]
  - Eyelid erosion [Unknown]
  - Oral mucosa erosion [Unknown]
  - Drug eruption [Recovered/Resolved]
  - Lip erosion [Unknown]
  - Rash maculo-papular [Unknown]
  - Generalised erythema [Unknown]
  - Stevens-Johnson syndrome [Recovered/Resolved]
  - Eye discharge [Unknown]

NARRATIVE: CASE EVENT DATE: 20121014
